FAERS Safety Report 7087966-9 (Version None)
Quarter: 2010Q4

REPORT INFORMATION
  Report Type: 
  Country: None (occurrence: None)
  Receive Date: 20101108
  Receipt Date: 20101102
  Transmission Date: 20110411
  Serious: Yes (Death, Other)
  Sender: FDA-Public Use
  Company Number: US-JNJFOC-20101101490

PATIENT
  Age: 62 Year
  Sex: Male

DRUGS (4)
  1. REOPRO [Suspect]
     Indication: MYOCARDIAL INFARCTION
     Route: 042
  2. REOPRO [Suspect]
     Route: 042
  3. HEPARIN [Concomitant]
     Indication: PERCUTANEOUS CORONARY INTERVENTION
  4. CLOPIDOGREL [Concomitant]
     Indication: PERCUTANEOUS CORONARY INTERVENTION

REACTIONS (6)
  - CARDIO-RESPIRATORY ARREST [None]
  - HYPERHIDROSIS [None]
  - HYPOTENSION [None]
  - MYOCARDIAL RUPTURE [None]
  - NAUSEA [None]
  - PERICARDIAL EFFUSION [None]
